FAERS Safety Report 11094848 (Version 3)
Quarter: 2015Q2

REPORT INFORMATION
  Report Type: Spontaneous
  Country: US (occurrence: US)
  Receive Date: 20150506
  Receipt Date: 20150515
  Transmission Date: 20150821
  Serious: Yes (Hospitalization)
  Sender: FDA-Public Use
  Company Number: US-ASTRAZENECA-2015SE39962

PATIENT
  Age: 68 Year
  Sex: Female
  Weight: 98 kg

DRUGS (16)
  1. OMEPRAZOLE. [Suspect]
     Active Substance: OMEPRAZOLE
     Route: 048
     Dates: start: 2013
  2. ATENOLOL. [Suspect]
     Active Substance: ATENOLOL
     Route: 048
  3. FLUOXETINE HCL [Suspect]
     Active Substance: FLUOXETINE HYDROCHLORIDE
     Route: 048
     Dates: start: 2010
  4. FLUTICASONE [Concomitant]
     Active Substance: FLUTICASONE\FLUTICASONE PROPIONATE
     Dosage: 50 MCG/ACT, 2 SPRAYS IN EACH NOSTRIL, DAILY
     Route: 045
  5. ALBUTEROL SULFATE. [Concomitant]
     Active Substance: ALBUTEROL SULFATE
     Dosage: HFA, 108 (90 BASE) MCG/AST, 2 PUFFS, EVERY SIX HOURS, AS NEEDED
  6. MULTIVITAMINS [Concomitant]
     Active Substance: VITAMINS
  7. LYRICA [Suspect]
     Active Substance: PREGABALIN
     Indication: NEURALGIA
     Route: 048
     Dates: start: 2005
  8. LYRICA [Suspect]
     Active Substance: PREGABALIN
     Indication: ABDOMINAL PAIN UPPER
     Route: 048
     Dates: start: 2005
  9. CELEBREX [Concomitant]
     Active Substance: CELECOXIB
     Route: 048
  10. LYRICA [Suspect]
     Active Substance: PREGABALIN
     Indication: LIMB DISCOMFORT
     Route: 048
     Dates: start: 2005
  11. ATORVASTATIN CALCIUM. [Concomitant]
     Active Substance: ATORVASTATIN CALCIUM
     Route: 048
     Dates: start: 2005
  12. GABAPENTIN. [Suspect]
     Active Substance: GABAPENTIN
     Dosage: 3 DF AT BEDTIME
     Route: 048
     Dates: start: 2010
  13. MONTELUKAST SODIUM. [Concomitant]
     Active Substance: MONTELUKAST SODIUM
     Route: 048
  14. HERBAL [Concomitant]
  15. HYDROCODONE BITARTRATE AND ACETAMINOPHEN [Concomitant]
     Active Substance: ACETAMINOPHEN\HYDROCODONE BITARTRATE
     Dosage: 7.5 -325 MG, 1 TABLET, AS DIRECTED
     Route: 048
  16. CELEX [Concomitant]
     Dates: start: 2010

REACTIONS (4)
  - Hearing impaired [Not Recovered/Not Resolved]
  - Limb discomfort [Not Recovered/Not Resolved]
  - Abdominal pain [Unknown]
  - Neuralgia [Not Recovered/Not Resolved]

NARRATIVE: CASE EVENT DATE: 2005
